FAERS Safety Report 17243512 (Version 1)
Quarter: 2020Q1

REPORT INFORMATION
  Report Type: Spontaneous
  Country: US (occurrence: US)
  Receive Date: 20200107
  Receipt Date: 20200107
  Transmission Date: 20200409
  Serious: No
  Sender: FDA-Public Use
  Company Number: US-UPSHER-SMITH LABORATORIES, LLC-2019USL00213

PATIENT
  Age: 103 Year
  Sex: Male
  Weight: 96.15 kg

DRUGS (6)
  1. LYRICA [Concomitant]
     Active Substance: PREGABALIN
  2. BENZTROPINE MESYLATE. [Suspect]
     Active Substance: BENZTROPINE MESYLATE
     Indication: DYSTONIA
     Dosage: UNK
     Route: 048
     Dates: start: 20180825, end: 2018
  3. ROSUVASTATIN. [Concomitant]
     Active Substance: ROSUVASTATIN
  4. QUINAPRIL. [Concomitant]
     Active Substance: QUINAPRIL
  5. UNSPECIFIED GOUT MEDICATION [Concomitant]
  6. METFORMIN [Concomitant]
     Active Substance: METFORMIN HYDROCHLORIDE

REACTIONS (1)
  - Dry mouth [Recovered/Resolved]

NARRATIVE: CASE EVENT DATE: 201808
